FAERS Safety Report 5218275-8 (Version None)
Quarter: 2007Q1

REPORT INFORMATION
  Report Type: 
  Country: None (occurrence: None)
  Receive Date: 20070122
  Receipt Date: 20070122
  Transmission Date: 20070707
  Serious: Yes (Other)
  Sender: FDA-Public Use
  Company Number: None

PATIENT
  Age: 57 Year
  Sex: Male

DRUGS (3)
  1. PRIMAXIN [Suspect]
     Dosage: 1 GM Q6H IV
     Route: 042
     Dates: start: 20061031
  2. VANCOMYCIN [Concomitant]
  3. LEVOFLOXACIN [Concomitant]

REACTIONS (2)
  - RASH ERYTHEMATOUS [None]
  - RASH PRURITIC [None]
